FAERS Safety Report 9547985 (Version 2)
Quarter: 2014Q1

REPORT INFORMATION
  Report Type: Spontaneous
  Country: US (occurrence: None)
  Receive Date: 20130524
  Receipt Date: 20130624
  Transmission Date: 20141002
  Serious: No
  Sender: FDA-Public Use
  Company Number: PHEH2013US004876

PATIENT
  Age: 56 Year
  Sex: Male
  Weight: 83.9 kg

DRUGS (8)
  1. GILENYA [Suspect]
     Indication: MULTIPLE SCLEROSIS
     Dates: start: 20130226
  2. BACLOFEN [Concomitant]
  3. VICODIN (HYDROCODONE BITARTRATE) [Concomitant]
  4. RISPERIDONE [Concomitant]
  5. ZOLOFT (SERTRALINE HYDROCHLORIDE) [Concomitant]
  6. TRAZODONE [Concomitant]
  7. OXYBUTYNIN [Concomitant]
  8. GABAPENTIN [Concomitant]

REACTIONS (2)
  - Fatigue [None]
  - Nausea [None]
